FAERS Safety Report 25565716 (Version 1)
Quarter: 2025Q3

REPORT INFORMATION
  Report Type: Spontaneous
  Country: US (occurrence: None)
  Receive Date: 20250715
  Receipt Date: 20250715
  Transmission Date: 20251021
  Serious: Yes (Disabling)
  Sender: FDA-CTU
  Company Number: None

PATIENT
  Age: 72 Year
  Sex: Male
  Weight: 79.38 kg

DRUGS (16)
  1. HIBICLENS [Suspect]
     Active Substance: CHLORHEXIDINE GLUCONATE
     Indication: Therapeutic skin care topical
     Route: 061
     Dates: start: 20250701, end: 20250701
  2. GABAPENTIN [Concomitant]
     Active Substance: GABAPENTIN
  3. CHLORTHALIDONE [Concomitant]
     Active Substance: CHLORTHALIDONE
  4. LEVOTHYROXINE [Concomitant]
     Active Substance: LEVOTHYROXINE
  5. METFORMIN [Concomitant]
     Active Substance: METFORMIN HYDROCHLORIDE
  6. TESTOSTERONE [Concomitant]
     Active Substance: TESTOSTERONE
  7. Nexium esomeprazole [Concomitant]
  8. AREDS 2 eye vitamin [Concomitant]
  9. Nutrinerve vitamins [Concomitant]
  10. AMITRIPTYLINE [Concomitant]
     Active Substance: AMITRIPTYLINE
  11. ROSUVASTATIN [Concomitant]
     Active Substance: ROSUVASTATIN
  12. Allegra fexofenidine [Concomitant]
  13. STOOL SOFTENER (DOCUSATE) [Concomitant]
     Active Substance: DOCUSATE
  14. OZEMPIC [Concomitant]
     Active Substance: SEMAGLUTIDE
  15. VITAMIN D3 [Concomitant]
     Active Substance: CHOLECALCIFEROL
  16. IRON [Concomitant]
     Active Substance: IRON

REACTIONS (2)
  - Application site dermatitis [None]
  - Dermatitis contact [None]

NARRATIVE: CASE EVENT DATE: 20250701
